FAERS Safety Report 6186946-5 (Version None)
Quarter: 2009Q2

REPORT INFORMATION
  Report Type: 
  Country: None (occurrence: None)
  Receive Date: 20090508
  Receipt Date: 20090421
  Transmission Date: 20091009
  Serious: Yes (Death)
  Sender: FDA-Public Use
  Company Number: ADE# 09-106DPR

PATIENT
  Age: 79 Year
  Sex: Female

DRUGS (1)
  1. DIGOXIN [Suspect]
     Indication: HEART RATE IRREGULAR
     Dates: end: 20090225

REACTIONS (5)
  - CARDIAC DISORDER [None]
  - DIARRHOEA [None]
  - DIZZINESS [None]
  - MYOCARDIAL INFARCTION [None]
  - NAUSEA [None]
